FAERS Safety Report 12071001 (Version 5)
Quarter: 2016Q2

REPORT INFORMATION
  Report Type: Report from Study
  Country: IT (occurrence: IT)
  Receive Date: 20160211
  Receipt Date: 20160418
  Transmission Date: 20160815
  Serious: Yes (Hospitalization, Congenital Anomaly)
  Sender: FDA-Public Use
  Company Number: PHHY2016IT016807

PATIENT
  Age: 7 Week
  Sex: Female
  Weight: 3.25 kg

DRUGS (2)
  1. BACLOFEN. [Suspect]
     Active Substance: BACLOFEN
     Indication: FOETAL EXPOSURE DURING PREGNANCY
     Dosage: MATERNAL DOSE: 25 MG QD
     Route: 064
  2. GILENYA [Suspect]
     Active Substance: FINGOLIMOD HYDROCHLORIDE
     Indication: FOETAL EXPOSURE DURING PREGNANCY
     Dosage: MATERNAL DOSE: 0.5 MG, QD
     Route: 064

REACTIONS (10)
  - Abdominal pain [Recovering/Resolving]
  - Abdominal distension [Recovering/Resolving]
  - Intestinal obstruction [Recovering/Resolving]
  - Obstructive defaecation [Recovering/Resolving]
  - Heart disease congenital [Unknown]
  - Otorrhoea [Unknown]
  - Constipation [Recovering/Resolving]
  - Faeces hard [Recovering/Resolving]
  - Vomiting [Recovering/Resolving]
  - Congenital megacolon [Recovering/Resolving]

NARRATIVE: CASE EVENT DATE: 20160129
